FAERS Safety Report 22200453 (Version 1)
Quarter: 2023Q2

REPORT INFORMATION
  Report Type: Spontaneous
  Country: CN (occurrence: CN)
  Receive Date: 20230412
  Receipt Date: 20230412
  Transmission Date: 20230722
  Serious: Yes (Other)
  Sender: FDA-Public Use
  Company Number: CN-QILU TIANHE PHARMACEUTICAL CO. LTD-QLT-000005-2023

PATIENT
  Age: 79 Year
  Sex: Male

DRUGS (11)
  1. PIPERACILLIN AND TAZOBACTAM [Suspect]
     Active Substance: PIPERACILLIN SODIUM\TAZOBACTAM SODIUM
     Indication: Chronic obstructive pulmonary disease
     Dosage: 4.5 G IV GUTTAE EVERY 8 HOURS
     Route: 042
     Dates: start: 20200713, end: 20200717
  2. PIPERACILLIN AND TAZOBACTAM [Suspect]
     Active Substance: PIPERACILLIN SODIUM\TAZOBACTAM SODIUM
     Indication: Pneumonia
     Dosage: 4.5 G IV GUTTAE EVERY 8 HOURS
     Route: 042
     Dates: start: 20210325, end: 20210402
  3. CEFOPERAZONE\SULBACTAM [Suspect]
     Active Substance: CEFOPERAZONE\SULBACTAM
     Indication: Chronic obstructive pulmonary disease
     Dosage: 4 G IV GUTTAE EVERY 12 HOURS
     Route: 042
     Dates: start: 20210826, end: 20210902
  4. GLICLAZIDE [Concomitant]
     Active Substance: GLICLAZIDE
     Indication: Type 2 diabetes mellitus
     Route: 065
  5. LOSARTAN [Concomitant]
     Active Substance: LOSARTAN
     Indication: Hypertension
     Route: 065
  6. BUDESONIDE\FORMOTEROL [Concomitant]
     Active Substance: BUDESONIDE\FORMOTEROL
     Indication: Chronic obstructive pulmonary disease
     Route: 065
  7. DOXOFYLLINE [Concomitant]
     Active Substance: DOXOFYLLINE
     Route: 065
  8. BROMHEXINE [Concomitant]
     Active Substance: BROMHEXINE
     Route: 065
  9. METHYLPREDNISOLONE [Concomitant]
     Active Substance: METHYLPREDNISOLONE
     Route: 065
  10. LEVOFLOXACIN [Concomitant]
     Active Substance: LEVOFLOXACIN
     Dosage: 0.5 G IV GUTTAE PER DAY
     Route: 065
  11. LEVOFLOXACIN [Concomitant]
     Active Substance: LEVOFLOXACIN

REACTIONS (3)
  - Immune thrombocytopenia [Recovered/Resolved]
  - Cross sensitivity reaction [Unknown]
  - Off label use [Recovered/Resolved]

NARRATIVE: CASE EVENT DATE: 20200713
